FAERS Safety Report 7803777-8 (Version None)
Quarter: 2011Q4

REPORT INFORMATION
  Report Type: 
  Country: None (occurrence: None)
  Receive Date: 20111010
  Receipt Date: 20111004
  Transmission Date: 20120403
  Serious: No
  Sender: FDA-Public Use
  Company Number: US-PFIZER INC-2011238107

PATIENT
  Sex: Male
  Weight: 95.2 kg

DRUGS (3)
  1. LYRICA [Suspect]
     Indication: NEUROPATHY PERIPHERAL
     Dosage: 150 MG, 2X/DAY
     Dates: start: 20090101, end: 20090101
  2. LYRICA [Suspect]
     Indication: BACK DISORDER
     Dosage: UNK
     Route: 048
     Dates: start: 20090101
  3. METHADONE HCL [Suspect]
     Dosage: UNK

REACTIONS (2)
  - SOMNOLENCE [None]
  - PAIN [None]
